FAERS Safety Report 6218060-4 (Version None)
Quarter: 2009Q2

REPORT INFORMATION
  Report Type: 
  Country: None (occurrence: None)
  Receive Date: 20090608
  Receipt Date: 20090602
  Transmission Date: 20091009
  Serious: Yes (Death, Other)
  Sender: FDA-Public Use
  Company Number: JP-ASTRAZENECA-2009AP02352

PATIENT
  Age: 83 Year
  Sex: Male
  Weight: 74 kg

DRUGS (9)
  1. IRESSA [Suspect]
     Indication: LUNG NEOPLASM MALIGNANT
     Route: 048
     Dates: start: 20090203, end: 20090316
  2. IRESSA [Suspect]
     Route: 048
     Dates: start: 20090324, end: 20090326
  3. JUVELA N [Suspect]
     Indication: RETINAL ARTERY OCCLUSION
     Route: 048
     Dates: start: 20040101
  4. CONIEL [Concomitant]
     Indication: HYPERTENSION
     Route: 048
     Dates: start: 20040101
  5. NU-LOTAN [Concomitant]
     Indication: HYPERTENSION
     Route: 048
     Dates: start: 20040101
  6. ANISTADIN [Concomitant]
     Indication: HYPERTENSION
     Route: 048
     Dates: start: 20040101
  7. CARDENALIN [Concomitant]
     Indication: HYPERTENSION
     Route: 048
     Dates: start: 20040101
  8. BUFFERIN [Concomitant]
     Indication: RETINAL ARTERY OCCLUSION
     Route: 048
     Dates: start: 20040101
  9. ADONA [Concomitant]
     Indication: RETINAL ARTERY OCCLUSION
     Route: 048
     Dates: start: 20040101

REACTIONS (8)
  - BLOOD CREATINE PHOSPHOKINASE INCREASED [None]
  - BLOOD LACTATE DEHYDROGENASE INCREASED [None]
  - DIARRHOEA [None]
  - DISSEMINATED INTRAVASCULAR COAGULATION [None]
  - MULTI-ORGAN FAILURE [None]
  - NAUSEA [None]
  - PANCREATITIS ACUTE [None]
  - THROMBOCYTOPENIA [None]
